FAERS Safety Report 9695192 (Version 1)
Quarter: 2013Q4

REPORT INFORMATION
  Report Type: Spontaneous
  Country: TW (occurrence: TW)
  Receive Date: 20131119
  Receipt Date: 20131119
  Transmission Date: 20140711
  Serious: Yes (Hospitalization)
  Sender: FDA-Public Use
  Company Number: TW-ASTRAZENECA-2013SE84326

PATIENT
  Sex: Female

DRUGS (10)
  1. BRILINTA [Suspect]
     Route: 048
     Dates: start: 20131025, end: 20131030
  2. BUNINEX [Concomitant]
     Route: 048
  3. BOKEY [Concomitant]
  4. BLOPRESS [Concomitant]
  5. ISMO-20 [Concomitant]
  6. AMARYL [Concomitant]
  7. ACTOS [Concomitant]
  8. JANUVIA [Concomitant]
  9. GLUCOBAT [Concomitant]
  10. GLIBUDON [Concomitant]

REACTIONS (3)
  - Renal injury [Unknown]
  - Cellulitis [Unknown]
  - Gout [Unknown]
